FAERS Safety Report 8444977 (Version 3)
Quarter: 2013Q1

REPORT INFORMATION
  Report Type: Spontaneous
  Country: FR (occurrence: None)
  Receive Date: 20120228
  Receipt Date: 20121018
  Transmission Date: 20140127
  Serious: Yes (Hospitalization)
  Sender: FDA-Public Use
  Company Number: 2012-000659

PATIENT
  Age: 70 Year
  Sex: Female
  Weight: 48 kg

DRUGS (2)
  1. ACTONEL [Suspect]
     Dosage: 35 MG, 1/WEEK, ORAL
     Route: 048
     Dates: start: 2010, end: 201202
  2. IDEOS (CALCIUM CARBONATE, COLECALCIFEROL) [Concomitant]

REACTIONS (10)
  - Respiratory tract infection [None]
  - Pyrexia [None]
  - Cough [None]
  - Fatigue [None]
  - Dysphagia [None]
  - Chills [None]
  - Laryngitis [None]
  - Lung neoplasm [None]
  - Organising pneumonia [None]
  - Weight decreased [None]
